FAERS Safety Report 25102507 (Version 3)
Quarter: 2025Q3

REPORT INFORMATION
  Report Type: Report from Study
  Country: TH (occurrence: TH)
  Receive Date: 20250321
  Receipt Date: 20250809
  Transmission Date: 20251020
  Serious: Yes (Death, Hospitalization, Other)
  Sender: ALEXION PHARMACEUTICALS
  Company Number: TH-AstraZeneca-CH-00829636A

PATIENT
  Age: 84 Year
  Sex: Male

DRUGS (1)
  1. OLAPARIB [Suspect]
     Active Substance: OLAPARIB
     Indication: Prostate cancer metastatic
     Dosage: 150 MILLIGRAM, BID
     Dates: start: 20231116

REACTIONS (8)
  - Enterococcal infection [Fatal]
  - Tumour marker increased [Unknown]
  - Drug resistance [Unknown]
  - Blood urine present [Unknown]
  - Choking [Unknown]
  - Lung disorder [Unknown]
  - Hypersensitivity [Unknown]
  - Off label use [Unknown]

NARRATIVE: CASE EVENT DATE: 20240901
